FAERS Safety Report 24623813 (Version 1)
Quarter: 2024Q4

REPORT INFORMATION
  Report Type: Spontaneous
  Country: US (occurrence: None)
  Receive Date: 20241114
  Receipt Date: 20241114
  Transmission Date: 20250115
  Serious: Yes (Hospitalization)
  Sender: Public
  Company Number: None

PATIENT
  Age: 44 Year
  Sex: Male

DRUGS (1)
  1. AUSTEDO [Suspect]
     Active Substance: DEUTETRABENAZINE
     Indication: Tremor
     Dosage: 9 MG TWICE A DY ORAL
     Route: 048
     Dates: start: 20221221

REACTIONS (2)
  - Mania [None]
  - Bipolar disorder [None]

NARRATIVE: CASE EVENT DATE: 20240902
